FAERS Safety Report 13210173 (Version 1)
Quarter: 2017Q1

REPORT INFORMATION
  Report Type: Spontaneous
  Country: US (occurrence: US)
  Receive Date: 20170209
  Receipt Date: 20170209
  Transmission Date: 20170428
  Serious: No
  Sender: FDA-Public Use
  Company Number: US-ALLERGAN-1601415US

PATIENT
  Sex: Male

DRUGS (1)
  1. BOTOX [Suspect]
     Active Substance: ONABOTULINUMTOXINA
     Indication: MUSCULOSKELETAL STIFFNESS
     Dosage: UNK UNK, SINGLE
     Route: 030
     Dates: start: 2015, end: 2015

REACTIONS (3)
  - Malaise [Unknown]
  - Off label use [Unknown]
  - Drug ineffective [Unknown]
